FAERS Safety Report 5694932-4 (Version None)
Quarter: 2008Q2

REPORT INFORMATION
  Report Type: 
  Country: None (occurrence: None)
  Receive Date: 20080404
  Receipt Date: 20080325
  Transmission Date: 20081010
  Serious: Yes (Disabling)
  Sender: FDA-Public Use
  Company Number: DE-ROCHE-531067

PATIENT
  Sex: Male
  Weight: 75 kg

DRUGS (1)
  1. LARIAM [Suspect]
     Indication: MALARIA PROPHYLAXIS
     Route: 048
     Dates: start: 20001220, end: 20010117

REACTIONS (20)
  - AFFECT LABILITY [None]
  - ANXIETY [None]
  - CARDIOVASCULAR DISORDER [None]
  - COMPULSIONS [None]
  - DEPRESSION [None]
  - HEART RATE IRREGULAR [None]
  - IRRITABILITY [None]
  - MUSCLE TWITCHING [None]
  - NERVOUS SYSTEM DISORDER [None]
  - PANIC ATTACK [None]
  - PERSONALITY CHANGE [None]
  - PSYCHOSOMATIC DISEASE [None]
  - RESTLESSNESS [None]
  - SELF ESTEEM DECREASED [None]
  - SENSORY DISTURBANCE [None]
  - SLEEP DISORDER [None]
  - STRESS AT WORK [None]
  - TACHYARRHYTHMIA [None]
  - TACHYCARDIA [None]
  - TREMOR [None]
